FAERS Safety Report 11672909 (Version 1)
Quarter: 2015Q4

REPORT INFORMATION
  Report Type: Spontaneous
  Country: US (occurrence: US)
  Receive Date: 20151027
  Receipt Date: 20151027
  Transmission Date: 20160304
  Serious: No
  Sender: FDA-Public Use
  Company Number: US-ELI_LILLY_AND_COMPANY-US201007002277

PATIENT
  Age: 79 Year
  Sex: Female

DRUGS (4)
  1. VITAMIN D [Concomitant]
     Active Substance: CHOLECALCIFEROL
     Dosage: UNK, DAILY (1/D)
  2. FISH OIL [Concomitant]
     Active Substance: FISH OIL
     Dosage: UNK, DAILY (1/D)
  3. CALCIUM [Concomitant]
     Active Substance: CALCIUM
     Dosage: UNK, DAILY (1/D)
  4. FORTEO [Suspect]
     Active Substance: TERIPARATIDE
     Indication: OSTEOPOROSIS
     Dosage: 20 UG, DAILY (1/D)

REACTIONS (3)
  - Blood potassium increased [Unknown]
  - Lung disorder [Unknown]
  - Plastic surgery to the face [Recovered/Resolved]

NARRATIVE: CASE EVENT DATE: 20100623
